FAERS Safety Report 21722387 (Version 1)
Quarter: 2022Q4

REPORT INFORMATION
  Report Type: Spontaneous
  Country: US (occurrence: None)
  Receive Date: 20221212
  Receipt Date: 20221212
  Transmission Date: 20230112
  Serious: Yes (Life-Threatening)
  Sender: FDA-Public Use
  Company Number: None

PATIENT
  Age: 18 Year
  Sex: Female

DRUGS (14)
  1. TRIKAFTA [Suspect]
     Active Substance: ELEXACAFTOR\IVACAFTOR\TEZACAFTOR
     Indication: Cystic fibrosis
     Dosage: OTHER QUANTITY : 100-50-75+150MG;?OTHER FREQUENCY : EVERY MORNING EVER;?
     Route: 048
     Dates: start: 20200123
  2. AZITHROMYCIN TAB [Concomitant]
  3. COMPLETE FORM D5000 SOFTGEL [Concomitant]
  4. KITABIS PAK [Concomitant]
     Active Substance: TOBRAMYCIN
  5. LORATADINE TAB [Concomitant]
  6. ONDANSETRON TAB [Concomitant]
  7. OXYBUTYNIN TAB [Concomitant]
  8. PANTOPRAZOLE SOD TAB [Concomitant]
  9. PROMETHAZINE [Concomitant]
     Active Substance: PROMETHAZINE HYDROCHLORIDE
  10. PULMOZYME [Concomitant]
     Active Substance: DORNASE ALFA
  11. TAMSULOSIN [Concomitant]
     Active Substance: TAMSULOSIN
  12. URSODIOL CAP [Concomitant]
  13. VITAMIN D3 [Concomitant]
     Active Substance: CHOLECALCIFEROL
  14. ZENPEP [Concomitant]
     Active Substance: PANCRELIPASE AMYLASE\PANCRELIPASE LIPASE\PANCRELIPASE PROTEASE

REACTIONS (1)
  - Haematochezia [None]

NARRATIVE: CASE EVENT DATE: 20221204
